FAERS Safety Report 5452804-4 (Version None)
Quarter: 2007Q3

REPORT INFORMATION
  Report Type: 
  Country: None (occurrence: None)
  Receive Date: 20070914
  Receipt Date: 20070904
  Transmission Date: 20080115
  Serious: Yes (Hospitalization)
  Sender: FDA-Public Use
  Company Number: PA-ELI_LILLY_AND_COMPANY-PA200709001139

PATIENT
  Age: 62 Year
  Sex: Male

DRUGS (2)
  1. ACE INHIBITOR NOS [Concomitant]
     Indication: HYPERTENSION
     Dosage: UNK, UNKNOWN
     Route: 065
  2. CYMBALTA [Suspect]
     Indication: DEPRESSION
     Dosage: 60 MG, ONCE
     Route: 048

REACTIONS (2)
  - CEREBROVASCULAR ACCIDENT [None]
  - HYPERTENSIVE CRISIS [None]
